FAERS Safety Report 7776129-7 (Version None)
Quarter: 2011Q3

REPORT INFORMATION
  Report Type: 
  Country: None (occurrence: None)
  Receive Date: 20110925
  Receipt Date: 20110811
  Transmission Date: 20111222
  Serious: Yes (Other)
  Sender: FDA-Public Use
  Company Number: PHHY2011MA80964

PATIENT
  Age: 71 Year
  Sex: Male

DRUGS (2)
  1. SPIRONOLACTONE [Concomitant]
  2. SEBIVO [Suspect]
     Indication: HEPATITIS B
     Dosage: 1 DF, DAILY
     Route: 048
     Dates: start: 20110601

REACTIONS (1)
  - ASCITES [None]
